FAERS Safety Report 25161802 (Version 1)
Quarter: 2025Q2

REPORT INFORMATION
  Report Type: Spontaneous
  Country: US (occurrence: None)
  Receive Date: 20250403
  Receipt Date: 20250403
  Transmission Date: 20250716
  Serious: Yes (Life-Threatening)
  Sender: FDA-CTU
  Company Number: None

PATIENT
  Age: 32 Year
  Sex: Female
  Weight: 81.9 kg

DRUGS (2)
  1. METHYLCOBALAMIN\NADIDE\TIRZEPATIDE [Suspect]
     Active Substance: METHYLCOBALAMIN\NADIDE\TIRZEPATIDE
     Indication: Polycystic ovaries
     Route: 050
     Dates: start: 20250330, end: 20250330
  2. METHYLCOBALAMIN\NADIDE\TIRZEPATIDE [Suspect]
     Active Substance: METHYLCOBALAMIN\NADIDE\TIRZEPATIDE
     Indication: Weight decreased

REACTIONS (8)
  - Product quality issue [None]
  - Urticaria [None]
  - Rash pruritic [None]
  - Lip swelling [None]
  - Swelling face [None]
  - Throat tightness [None]
  - Dyspnoea [None]
  - Burning sensation [None]

NARRATIVE: CASE EVENT DATE: 20250330
